FAERS Safety Report 19868091 (Version 9)
Quarter: 2022Q3

REPORT INFORMATION
  Report Type: Report from Study
  Country: US (occurrence: US)
  Receive Date: 20210921
  Receipt Date: 20220708
  Transmission Date: 20221027
  Serious: No
  Sender: FDA-Public Use
  Company Number: NVSC2021US213498

PATIENT
  Age: 40 Year
  Sex: Female
  Weight: 58.97 kg

DRUGS (3)
  1. KESIMPTA [Suspect]
     Active Substance: OFATUMUMAB
     Indication: Clinically isolated syndrome
     Dosage: 20 MG, LAST LOADING DOSE
     Route: 058
  2. KESIMPTA [Suspect]
     Active Substance: OFATUMUMAB
     Indication: Secondary progressive multiple sclerosis
     Dosage: 20 MG, QMO
     Route: 058
     Dates: start: 20210826
  3. KESIMPTA [Suspect]
     Active Substance: OFATUMUMAB
     Indication: Relapsing-remitting multiple sclerosis

REACTIONS (14)
  - Abdominal pain upper [Not Recovered/Not Resolved]
  - Swelling [Unknown]
  - Headache [Not Recovered/Not Resolved]
  - Fatigue [Recovering/Resolving]
  - Malaise [Unknown]
  - Lethargy [Unknown]
  - Body temperature fluctuation [Unknown]
  - Pyrexia [Unknown]
  - Nausea [Unknown]
  - Feeling cold [Unknown]
  - Needle issue [Not Recovered/Not Resolved]
  - Device issue [Unknown]
  - Product dose omission issue [Not Recovered/Not Resolved]
  - Inappropriate schedule of product administration [Not Recovered/Not Resolved]

NARRATIVE: CASE EVENT DATE: 20210909
